FAERS Safety Report 9340711 (Version 2)
Quarter: 2014Q1

REPORT INFORMATION
  Report Type: Report from Study
  Country: JP (occurrence: JP)
  Receive Date: 20130610
  Receipt Date: 20140320
  Transmission Date: 20141002
  Serious: No
  Sender: FDA-Public Use
  Company Number: JP-GLAXOSMITHKLINE-B0896811A

PATIENT
  Age: 33 Year
  Sex: Male

DRUGS (2)
  1. VOTRIENT 200MG [Suspect]
     Indication: PANCREATIC NEUROENDOCRINE TUMOUR
     Dosage: 800MG PER DAY
     Route: 048
     Dates: start: 20130110, end: 20130412
  2. GASTER [Concomitant]
     Route: 048

REACTIONS (1)
  - Hair colour changes [Unknown]
